FAERS Safety Report 5340823-8 (Version None)
Quarter: 2007Q2

REPORT INFORMATION
  Report Type: 
  Country: None (occurrence: None)
  Receive Date: 20070405
  Receipt Date: 20061106
  Transmission Date: 20071010
  Serious: Yes (Hospitalization)
  Sender: FDA-Public Use
  Company Number: US200609004873

PATIENT
  Age: 60 Year
  Sex: Male
  Weight: 80.7 kg

DRUGS (5)
  1. CYMBALTA [Suspect]
     Indication: SOMATISATION DISORDER
     Dosage: SEE IMAGE
     Dates: start: 20060821
  2. TEGRETOL [Concomitant]
  3. ACTONEL /USA/ (RISEDRONATE SODIUM) [Concomitant]
  4. CORZIDE (BENDROFLUMETHIAZIDE, NADOLOL) [Concomitant]
  5. CALCITROL (CALCIUM CARBONATE, ERGOCALCIFEROL, RETINOL) [Concomitant]

REACTIONS (1)
  - HYPONATRAEMIA [None]
